FAERS Safety Report 5876066-9 (Version None)
Quarter: 2008Q3

REPORT INFORMATION
  Report Type: 
  Country: None (occurrence: None)
  Receive Date: 20080908
  Receipt Date: 20080908
  Transmission Date: 20090109
  Serious: Yes (Other)
  Sender: FDA-Public Use
  Company Number: None

PATIENT
  Age: 23 Year
  Sex: Male
  Weight: 120.2032 kg

DRUGS (1)
  1. CHANTIX [Suspect]
     Indication: SMOKING CESSATION THERAPY
     Dosage: 2 TABLETS ONCE DAILY PO
     Route: 048
     Dates: start: 20080801, end: 20080810

REACTIONS (5)
  - ABNORMAL DREAMS [None]
  - BIPOLAR DISORDER [None]
  - CONDITION AGGRAVATED [None]
  - PARANOIA [None]
  - PSYCHOTIC DISORDER [None]
